FAERS Safety Report 16893699 (Version 2)
Quarter: 2019Q4

REPORT INFORMATION
  Report Type: Spontaneous
  Country: IL (occurrence: IL)
  Receive Date: 20191008
  Receipt Date: 20191014
  Transmission Date: 20200122
  Serious: Yes (Other)
  Sender: FDA-Public Use
  Company Number: IL-PFIZER INC-2019104149

PATIENT
  Age: 10 Year
  Sex: Female

DRUGS (1)
  1. GENOTROPIN [Suspect]
     Active Substance: SOMATROPIN
     Dosage: UNK
     Route: 058
     Dates: start: 20181224

REACTIONS (6)
  - Loss of consciousness [Unknown]
  - Injection site pain [Unknown]
  - Product dose omission [Unknown]
  - Syncope [Unknown]
  - Wrong technique in device usage process [Unknown]
  - Reaction to excipient [Unknown]
